FAERS Safety Report 20719206 (Version 2)
Quarter: 2022Q2

REPORT INFORMATION
  Report Type: Spontaneous
  Country: GB (occurrence: GB)
  Receive Date: 20220418
  Receipt Date: 20220505
  Transmission Date: 20220720
  Serious: Yes (Life-Threatening, Hospitalization, Other)
  Sender: FDA-Public Use
  Company Number: GB-BAYER-2022A052214

PATIENT
  Age: 2 Year
  Sex: Male
  Weight: 10.5 kg

DRUGS (2)
  1. LAROTRECTINIB [Suspect]
     Active Substance: LAROTRECTINIB
     Indication: Spinal cord neoplasm
     Dosage: 54 MG, BID (VIA NG TUBE)
     Route: 048
     Dates: start: 202108
  2. LAROTRECTINIB [Suspect]
     Active Substance: LAROTRECTINIB
     Indication: Gene mutation

REACTIONS (2)
  - Cervical cord compression [Recovered/Resolved]
  - Enterovirus infection [None]

NARRATIVE: CASE EVENT DATE: 20220301
